FAERS Safety Report 9191645 (Version 1)
Quarter: 2013Q1

REPORT INFORMATION
  Report Type: Spontaneous
  Country: CH (occurrence: CH)
  Receive Date: 20130326
  Receipt Date: 20130326
  Transmission Date: 20140127
  Serious: Yes (Congenital Anomaly)
  Sender: FDA-Public Use
  Company Number: CH-MYLANLABS-2013S1005884

PATIENT
  Sex: 0

DRUGS (3)
  1. ROSUVASTATIN [Suspect]
     Route: 064
  2. METFORMIN [Suspect]
     Route: 064
  3. ALLOPURINOL [Suspect]
     Route: 064

REACTIONS (2)
  - Trisomy 21 [Not Recovered/Not Resolved]
  - Exposure during pregnancy [Recovered/Resolved]
